FAERS Safety Report 11165433 (Version 1)
Quarter: 2015Q2

REPORT INFORMATION
  Report Type: Spontaneous
  Country: US (occurrence: US)
  Receive Date: 20150604
  Receipt Date: 20150604
  Transmission Date: 20150821
  Serious: No
  Sender: FDA-Public Use
  Company Number: US-GLAXOSMITHKLINE-US2015073308

PATIENT
  Sex: Female

DRUGS (2)
  1. DHEA [Concomitant]
     Active Substance: DEHYDROEPIANDROSTERONE-3-SULFATE SODIUM
  2. AVODART [Suspect]
     Active Substance: DUTASTERIDE
     Indication: ALOPECIA

REACTIONS (2)
  - Therapeutic response unexpected [Unknown]
  - Off label use [Unknown]
